FAERS Safety Report 5822378-4 (Version None)
Quarter: 2008Q3

REPORT INFORMATION
  Report Type: 
  Country: None (occurrence: None)
  Receive Date: 20080723
  Receipt Date: 20080723
  Transmission Date: 20090109
  Serious: Yes (Hospitalization)
  Sender: FDA-Public Use
  Company Number: None

PATIENT
  Age: 44 Year
  Sex: Female
  Weight: 54.4316 kg

DRUGS (1)
  1. NALTREXONE  UNKNOWN [Suspect]
     Indication: ALCOHOLISM
     Dosage: 1 MG ONCE PO
     Route: 048
     Dates: start: 20080709, end: 20080709

REACTIONS (7)
  - AGITATION [None]
  - ANXIETY [None]
  - BLOOD GLUCOSE INCREASED [None]
  - DELIRIUM [None]
  - DRUG SCREEN POSITIVE [None]
  - HAEMOGLOBIN DECREASED [None]
  - PLATELET COUNT DECREASED [None]
